FAERS Safety Report 9345735 (Version 2)
Quarter: 2013Q3

REPORT INFORMATION
  Report Type: Spontaneous
  Country: US (occurrence: US)
  Receive Date: 20130613
  Receipt Date: 20130723
  Transmission Date: 20140515
  Serious: No
  Sender: FDA-Public Use
  Company Number: US-PFIZER INC-2013174276

PATIENT
  Age: 78 Year
  Sex: Female
  Weight: 61.22 kg

DRUGS (5)
  1. AROMASIN [Suspect]
     Indication: BREAST CANCER
     Dosage: 25 MG, 1X/DAY
     Route: 048
     Dates: start: 2012
  2. LIPITOR [Concomitant]
     Indication: BLOOD CHOLESTEROL INCREASED
     Dosage: 20 MG, 1X/DAY
  3. TOPROL XL [Concomitant]
     Dosage: 25 MG, 1X/DAY
  4. DIOVAN [Concomitant]
     Dosage: 80 MG, 1X/DAY
  5. NPH INSULIN [Concomitant]
     Indication: DIABETES MELLITUS
     Dosage: TWO TIMES A DAY: 16 UNITS BEFORE BREAKFAST AND 16-18 UNITS BEFORE DINNER,

REACTIONS (2)
  - Pruritus [Unknown]
  - Body height decreased [Unknown]
